FAERS Safety Report 5425990-X (Version None)
Quarter: 2007Q3

REPORT INFORMATION
  Report Type: 
  Country: None (occurrence: None)
  Receive Date: 20070827
  Receipt Date: 20070815
  Transmission Date: 20080115
  Serious: Yes (Hospitalization, Other)
  Sender: FDA-Public Use
  Company Number: US-AMGEN-US220389

PATIENT
  Sex: Female
  Weight: 76.7 kg

DRUGS (9)
  1. NEULASTA [Suspect]
     Indication: CHEMOTHERAPY
     Route: 058
     Dates: start: 20070213, end: 20070316
  2. GEMCITABINE HCL [Concomitant]
     Route: 065
  3. CARBOPLATIN [Concomitant]
     Route: 065
  4. CARAFATE [Concomitant]
     Route: 065
     Dates: start: 20061106
  5. PROTONIX [Concomitant]
     Route: 065
     Dates: start: 20061106
  6. LEVOTHYROXINE SODIUM [Concomitant]
     Route: 065
     Dates: start: 20061106
  7. POTASSIUM CHLORIDE [Concomitant]
     Route: 065
     Dates: start: 20061106
  8. ALBUTEROL [Concomitant]
     Route: 065
     Dates: start: 20061106
  9. ATROVENT [Concomitant]
     Route: 065
     Dates: start: 20061106

REACTIONS (5)
  - ANAEMIA [None]
  - LEUKOCYTOSIS [None]
  - MALIGNANT PLEURAL EFFUSION [None]
  - PNEUMONIA [None]
  - VENTRICULAR TACHYCARDIA [None]
